FAERS Safety Report 9087365 (Version 1)
Quarter: 2013Q1

REPORT INFORMATION
  Report Type: Report from Study
  Country: PR (occurrence: PR)
  Receive Date: 20130201
  Receipt Date: 20130201
  Transmission Date: 20140127
  Serious: Yes (Hospitalization, Other)
  Sender: FDA-Public Use
  Company Number: PR-ABBOTT-12P-131-0978319-00

PATIENT
  Age: 56 None
  Sex: Male
  Weight: 116.22 kg

DRUGS (12)
  1. HUMIRA [Suspect]
     Indication: RHEUMATOID ARTHRITIS
     Route: 058
     Dates: start: 201208, end: 201209
  2. HUMIRA [Suspect]
     Route: 058
     Dates: start: 201211
  3. METHOTREXATE [Concomitant]
     Indication: RHEUMATOID ARTHRITIS
     Route: 048
  4. PROAIR [Concomitant]
     Indication: ASTHMA
     Route: 048
  5. FOLIC ACID [Concomitant]
     Indication: RHEUMATOID ARTHRITIS
     Route: 048
  6. QVAR [Concomitant]
     Indication: ASTHMA
     Route: 048
  7. METFORMIN [Concomitant]
     Indication: DIABETES MELLITUS
     Route: 048
  8. AMARYL [Concomitant]
     Indication: DIABETES MELLITUS
     Route: 048
  9. JANUVIA [Concomitant]
     Indication: DIABETES MELLITUS
     Route: 048
  10. LOSARTAN [Concomitant]
     Indication: HYPERTENSION
     Route: 048
  11. HUMULIN R [Concomitant]
     Indication: DIABETES MELLITUS
     Dosage: FOUR TIMES DAILY
     Route: 058
     Dates: start: 201209
  12. LANTUS [Concomitant]
     Indication: DIABETES MELLITUS
     Dosage: HS
     Route: 058
     Dates: start: 201209

REACTIONS (4)
  - Cellulitis [Recovering/Resolving]
  - Osteomyelitis [Unknown]
  - Constipation [Recovered/Resolved]
  - Blood glucose increased [Recovered/Resolved]
